FAERS Safety Report 8339801-6 (Version None)
Quarter: 2012Q2

REPORT INFORMATION
  Report Type: 
  Country: None (occurrence: None)
  Receive Date: 20120507
  Receipt Date: 20120426
  Transmission Date: 20120825
  Serious: Yes (Other)
  Sender: FDA-Public Use
  Company Number: JP-VERTEX PHARMACEUTICALS INC.-AE-2012-006316

PATIENT
  Age: 60 Year
  Sex: Male

DRUGS (16)
  1. REBETOL [Concomitant]
     Route: 048
     Dates: start: 20120303, end: 20120316
  2. REBETOL [Concomitant]
     Route: 048
     Dates: start: 20120225
  3. PEG-INTRON [Concomitant]
     Indication: HEPATITIS C
     Route: 051
     Dates: start: 20120121
  4. LOCHOLEST [Concomitant]
     Route: 048
     Dates: start: 20120121
  5. TELAVIC (TELAPREVIR) [Suspect]
     Indication: HEPATITIS C
     Route: 048
     Dates: start: 20120121
  6. TELAVIC (TELAPREVIR) [Suspect]
     Route: 048
     Dates: start: 20120303, end: 20120316
  7. ALFAROL [Concomitant]
     Route: 048
     Dates: start: 20120121
  8. TALION [Concomitant]
     Route: 048
     Dates: start: 20120121
  9. LOXONIN [Concomitant]
     Route: 048
     Dates: start: 20120121
  10. REBETOL [Concomitant]
     Indication: HEPATITIS C
     Route: 048
     Dates: start: 20120121, end: 20120224
  11. VITAMIN B12 [Concomitant]
  12. AMLODIPINE BESYLATE [Concomitant]
     Route: 048
  13. TELAVIC (TELAPREVIR) [Suspect]
     Route: 048
     Dates: start: 20120317, end: 20120413
  14. REBETOL [Concomitant]
     Route: 048
     Dates: start: 20120317
  15. SELBEX [Concomitant]
     Route: 048
     Dates: start: 20120121
  16. NEXIUM [Concomitant]
     Route: 048
     Dates: start: 20120121

REACTIONS (2)
  - HAEMOGLOBIN DECREASED [None]
  - RENAL IMPAIRMENT [None]
